FAERS Safety Report 16767512 (Version 1)
Quarter: 2019Q3

REPORT INFORMATION
  Report Type: Report from Study
  Country: ES (occurrence: ES)
  Receive Date: 20190903
  Receipt Date: 20190903
  Transmission Date: 20191005
  Serious: Yes (Other)
  Sender: FDA-Public Use
  Company Number: ES-MYLANLABS-2019M1081723

PATIENT
  Age: 49 Year
  Sex: Male

DRUGS (7)
  1. BROMAZEPAM [Concomitant]
     Active Substance: BROMAZEPAM
     Dosage: 1 CAPSULE EVERY 12 H
     Route: 065
     Dates: start: 201901
  2. FENTANYL. [Suspect]
     Active Substance: FENTANYL
     Dosage: 1 RESCUE DOSE WHEN HE HAS NOT DEFECATING FOR MORE THAN 1 DAY OR ITS VOLUME INCREASE
     Route: 045
     Dates: start: 2019
  3. FENTANYL. [Suspect]
     Active Substance: FENTANYL
     Indication: CANCER PAIN
     Dosage: 12 UG/H/72H
     Route: 065
     Dates: start: 201901, end: 2019
  4. FENTANYL. [Suspect]
     Active Substance: FENTANYL
     Indication: BREAKTHROUGH PAIN
     Dosage: 1 RESCUE DOSE EVERY TIME THE PATIENT DEFECATES
     Route: 045
     Dates: start: 201901, end: 2019
  5. CAPECITABINE. [Suspect]
     Active Substance: CAPECITABINE
     Indication: COLORECTAL ADENOCARCINOMA
     Dosage: 1500 MG, EVERY 12H (TOGETHER WITH RADIOTHERAPY SESSIONS)
     Route: 065
     Dates: start: 20181217
  6. MACROGOL [Concomitant]
     Active Substance: POLYETHYLENE GLYCOLS
     Indication: DYSCHEZIA
     Dosage: 1 SACHET EVERY 24 HOURS
     Route: 065
  7. DEXKETOPROFEN [Concomitant]
     Active Substance: DEXKETOPROFEN
     Indication: CANCER PAIN
     Dosage: 1 TABLET EVERY 8 HOURS
     Route: 065

REACTIONS (3)
  - Off label use [Not Recovered/Not Resolved]
  - Therapy naive [Not Recovered/Not Resolved]
  - Neurotoxicity [Unknown]

NARRATIVE: CASE EVENT DATE: 201901
